FAERS Safety Report 15555276 (Version 1)
Quarter: 2018Q4

REPORT INFORMATION
  Report Type: Spontaneous
  Country: US (occurrence: US)
  Receive Date: 20181023
  Receipt Date: 20181023
  Transmission Date: 20190205
  Serious: No
  Sender: FDA-Public Use
  Company Number: None

PATIENT
  Age: 72 Year
  Weight: 117.4 kg

DRUGS (13)
  1. PERCOCET [Suspect]
     Active Substance: ACETAMINOPHEN\OXYCODONE HYDROCHLORIDE
     Indication: PAIN
     Dosage: DOSAGE 5/325 MG
     Route: 048
  2. APAP [Concomitant]
     Active Substance: ACETAMINOPHEN
  3. XALATAN [Concomitant]
     Active Substance: LATANOPROST
  4. ADVAIR HFA [Concomitant]
     Active Substance: FLUTICASONE PROPIONATE\SALMETEROL XINAFOATE
  5. ASA [Concomitant]
     Active Substance: ASPIRIN
  6. HUMALOG [Concomitant]
     Active Substance: INSULIN LISPRO
  7. MOBIC [Suspect]
     Active Substance: MELOXICAM
  8. EPIPEN [Concomitant]
     Active Substance: EPINEPHRINE
  9. NEXIUM [Concomitant]
     Active Substance: ESOMEPRAZOLE MAGNESIUM
  10. DURAGESIC [Suspect]
     Active Substance: FENTANYL
     Indication: PAIN
     Dosage: ?          OTHER FREQUENCY:Q 72 HOURS ;?
     Route: 062
  11. PERCOCET [Suspect]
     Active Substance: ACETAMINOPHEN\OXYCODONE HYDROCHLORIDE
     Indication: PAIN
  12. TOTAL BW/C [Concomitant]
  13. LANTUS [Concomitant]
     Active Substance: INSULIN GLARGINE

REACTIONS (3)
  - Encephalopathy [None]
  - Infection [None]
  - Oxygen saturation decreased [None]

NARRATIVE: CASE EVENT DATE: 20180806
